FAERS Safety Report 9690637 (Version 2)
Quarter: 2013Q4

REPORT INFORMATION
  Report Type: Spontaneous
  Country: DE (occurrence: None)
  Receive Date: 20131113
  Receipt Date: 20131119
  Transmission Date: 20140711
  Serious: Yes (Hospitalization)
  Sender: FDA-Public Use
  Company Number: 2013MPI00693

PATIENT
  Age: 25 Year
  Sex: Female

DRUGS (9)
  1. BRENTUXIMAB VEDOTIN (BRENTUXIMAB VEDOTIN) INJECTION [Suspect]
     Indication: HODGKIN^S DISEASE
     Dosage: QCYCLE
     Route: 042
     Dates: start: 20130610, end: 20130924
  2. ETOPOSIDE (ETOPOSIDE) [Suspect]
     Indication: HODGKIN^S DISEASE
     Dosage: QCYCLE
     Route: 042
     Dates: start: 20130611, end: 20130927
  3. CYCLOPHOSPHAMIDE (CYCLOPHOSPHAMIDE) [Suspect]
     Indication: HODGKIN^S DISEASE
     Dosage: QCYCLE
     Route: 042
     Dates: start: 20130611, end: 20130925
  4. DOXORUBICIN [Suspect]
     Indication: HODGKIN^S DISEASE
     Dosage: QCYCLE
     Route: 042
     Dates: start: 20130611, end: 20130925
  5. PROCARBAZINE (PROCARBAZINE) [Suspect]
     Indication: HODGKIN^S DISEASE
     Dosage: QCYCLE
     Dates: start: 20130611, end: 20131010
  6. PREDNISONE (PREDNISONE) [Suspect]
     Indication: HODGKIN^S DISEASE
     Dosage: QCYCLE
     Dates: start: 20130611, end: 20131008
  7. FUROSEMID (FUROSEMIDE) [Concomitant]
  8. METAMIZOLE (METAMIZOLE SODIUM) [Concomitant]
  9. MIRTAZAPIN (MIRTAZAPINE) [Concomitant]

REACTIONS (2)
  - Computerised tomogram abdomen abnormal [None]
  - Pneumoperitoneum [None]
